FAERS Safety Report 4969422-4 (Version None)
Quarter: 2006Q2

REPORT INFORMATION
  Report Type: 
  Country: None (occurrence: None)
  Receive Date: 20060406
  Receipt Date: 20060329
  Transmission Date: 20061013
  Serious: Yes (Hospitalization)
  Sender: FDA-Public Use
  Company Number: 200611977BWH

PATIENT
  Age: 73 Year
  Sex: Female

DRUGS (12)
  1. NEXAVAR [Suspect]
     Indication: RENAL CELL CARCINOMA STAGE UNSPECIFIED
     Dosage: 400 MG, BID, ORAL
     Route: 048
     Dates: start: 20060324, end: 20060326
  2. VITASMART [Concomitant]
  3. STOOL SOFTENER [Concomitant]
  4. LIPITOR [Concomitant]
  5. BUMETANIDE [Concomitant]
  6. DIOVAN [Concomitant]
  7. ATENOLOL [Concomitant]
  8. NIFEDICAL [Concomitant]
  9. CLONIDINE [Concomitant]
  10. COUMADIN [Concomitant]
  11. TRAMADOL HCL [Concomitant]
  12. POTASSIUM [Concomitant]

REACTIONS (1)
  - CONVULSION [None]
